FAERS Safety Report 6573473-6 (Version None)
Quarter: 2010Q1

REPORT INFORMATION
  Report Type: 
  Country: None (occurrence: None)
  Receive Date: 20100208
  Receipt Date: 20100202
  Transmission Date: 20100710
  Serious: Yes (Disabling)
  Sender: FDA-Public Use
  Company Number: FR-SANOFI-AVENTIS-2010SA006359

PATIENT
  Age: 86 Year
  Sex: Male

DRUGS (11)
  1. LASILIX FAIBLE [Suspect]
     Indication: DRUG USE FOR UNKNOWN INDICATION
     Route: 048
  2. LYRICA [Suspect]
     Indication: DRUG USE FOR UNKNOWN INDICATION
     Route: 048
     Dates: start: 20090422, end: 20090423
  3. LYRICA [Suspect]
     Route: 048
     Dates: start: 20090424, end: 20090425
  4. XANAX [Suspect]
     Indication: DRUG USE FOR UNKNOWN INDICATION
     Route: 048
  5. CARDENSIEL [Suspect]
     Indication: DRUG USE FOR UNKNOWN INDICATION
     Route: 048
  6. OLMETEC [Suspect]
     Indication: DRUG USE FOR UNKNOWN INDICATION
     Route: 048
  7. KARDEGIC [Concomitant]
     Indication: DRUG USE FOR UNKNOWN INDICATION
     Route: 048
  8. DAFALGAN [Concomitant]
     Indication: DRUG USE FOR UNKNOWN INDICATION
     Route: 048
  9. PLAVIX [Concomitant]
     Indication: CORONARY ARTERY DISEASE
     Route: 048
  10. ESOMEPRAZOLE [Concomitant]
     Indication: DRUG USE FOR UNKNOWN INDICATION
     Route: 048
  11. DOMPERIDONE [Concomitant]
     Indication: DRUG USE FOR UNKNOWN INDICATION
     Route: 048

REACTIONS (3)
  - DELIRIUM [None]
  - FALL [None]
  - FEMORAL NECK FRACTURE [None]
